FAERS Safety Report 7841861-3 (Version None)
Quarter: 2011Q4

REPORT INFORMATION
  Report Type: 
  Country: None (occurrence: None)
  Receive Date: 20111024
  Receipt Date: 20111024
  Transmission Date: 20120403
  Serious: No
  Sender: FDA-Public Use
  Company Number: None

PATIENT
  Sex: Female
  Weight: 45.3597 kg

DRUGS (2)
  1. ONGLYZA [Suspect]
     Dosage: INCREASED TO 5MG 1 DAILY
     Dates: start: 20110809
  2. ONGLYZA [Suspect]
     Indication: DIABETES MELLITUS
     Dosage: 1/2 OF 250  1 DAILY
     Dates: start: 20110507

REACTIONS (2)
  - BLOOD TEST ABNORMAL [None]
  - NAUSEA [None]
